FAERS Safety Report 15230435 (Version 2)
Quarter: 2018Q3

REPORT INFORMATION
  Report Type: Spontaneous
  Country: DE (occurrence: DE)
  Receive Date: 20180802
  Receipt Date: 20180824
  Transmission Date: 20181010
  Serious: Yes (Other)
  Sender: FDA-Public Use
  Company Number: DE-ROCHE-2163436

PATIENT

DRUGS (1)
  1. XOLAIR [Suspect]
     Active Substance: OMALIZUMAB
     Indication: BRONCHOPULMONARY ASPERGILLOSIS ALLERGIC
     Dosage: UNK
     Route: 065
     Dates: start: 2016

REACTIONS (3)
  - Blood immunoglobulin E increased [Unknown]
  - Product use in unapproved indication [Unknown]
  - Bronchopulmonary aspergillosis allergic [Recovering/Resolving]
